FAERS Safety Report 8802914 (Version 1)
Quarter: 2012Q4

REPORT INFORMATION
  Report Type: 
  Country: NZ (occurrence: NZ)
  Receive Date: 20120924
  Receipt Date: 20120924
  Transmission Date: 20130627
  Serious: Yes (Hospitalization)
  Sender: FDA-Public Use
  Company Number: NZ-PFIZER INC-2012164093

PATIENT
  Sex: Female

DRUGS (1)
  1. SULFASALAZINE [Suspect]
     Dosage: UNK

REACTIONS (2)
  - Restrictive pulmonary disease [Unknown]
  - Drug hypersensitivity [Unknown]
